FAERS Safety Report 8497283 (Version 2)
Quarter: 2013Q4

REPORT INFORMATION
  Report Type: Report from Study
  Country: DE (occurrence: DE)
  Receive Date: 20120406
  Receipt Date: 20131212
  Transmission Date: 20140711
  Serious: Yes (Other)
  Sender: FDA-Public Use
  Company Number: DE-UCBSA-054356

PATIENT
  Sex: Female

DRUGS (5)
  1. CIMZIA [Suspect]
     Indication: RHEUMATOID ARTHRITIS
     Route: 058
     Dates: start: 20091215, end: 20110110
  2. PREDNISOLONE [Concomitant]
     Indication: RHEUMATOID ARTHRITIS
     Dates: start: 2002
  3. ALENDRO Q [Concomitant]
     Indication: OSTEOPOROSIS
     Dates: start: 20080507
  4. L-THYROXIN [Concomitant]
     Indication: THYROIDECTOMY
     Dates: start: 1993
  5. DEKRISTOL [Concomitant]
     Indication: OSTEOPOROSIS PROPHYLAXIS
     Dates: start: 200608

REACTIONS (1)
  - Psoriasis [Recovered/Resolved]
